FAERS Safety Report 14190660 (Version 1)
Quarter: 2017Q4

REPORT INFORMATION
  Report Type: Spontaneous
  Country: US (occurrence: US)
  Receive Date: 20171114
  Receipt Date: 20171114
  Transmission Date: 20180321
  Serious: Yes (Disabling)
  Sender: FDA-Public Use
  Company Number: None

PATIENT
  Sex: Male
  Weight: 92.25 kg

DRUGS (1)
  1. HUMIRA [Suspect]
     Active Substance: ADALIMUMAB
     Indication: CROHN^S DISEASE
     Dosage: ?          OTHER ROUTE:SUBCUTANEOUSLY BY INJECTION?
     Route: 058

REACTIONS (5)
  - Pruritus [None]
  - Rash pustular [None]
  - Pain [None]
  - Blister [None]
  - Skin irritation [None]

NARRATIVE: CASE EVENT DATE: 20171104
